FAERS Safety Report 17845658 (Version 2)
Quarter: 2020Q2

REPORT INFORMATION
  Report Type: Spontaneous
  Country: US (occurrence: US)
  Receive Date: 20200601
  Receipt Date: 20200602
  Transmission Date: 20200714
  Serious: No
  Sender: FDA-Public Use
  Company Number: US-PFIZER INC-2020212900

PATIENT
  Age: 74 Year
  Sex: Female
  Weight: 72.12 kg

DRUGS (1)
  1. IBRANCE [Suspect]
     Active Substance: PALBOCICLIB
     Indication: BREAST CANCER METASTATIC
     Dosage: 125 MG, CYCLIC (ONCE PER DAY FOR 21 DAYS, 7 DAYS OFF)
     Route: 048
     Dates: start: 201901

REACTIONS (4)
  - Pain in extremity [Not Recovered/Not Resolved]
  - Asthenia [Not Recovered/Not Resolved]
  - Alopecia [Recovering/Resolving]
  - Stomatitis [Unknown]

NARRATIVE: CASE EVENT DATE: 20200507
